FAERS Safety Report 12157640 (Version 1)
Quarter: 2016Q1

REPORT INFORMATION
  Report Type: Spontaneous
  Country: US (occurrence: None)
  Receive Date: 20160307
  Receipt Date: 20160307
  Transmission Date: 20160526
  Serious: No
  Sender: FDA-Public Use
  Company Number: None

PATIENT
  Age: 66 Year
  Sex: Female
  Weight: 57.15 kg

DRUGS (7)
  1. METRONIDAZOLE GEL [Concomitant]
  2. VITAMIN D3 [Concomitant]
     Active Substance: CHOLECALCIFEROL
  3. ATENOLOL. [Concomitant]
     Active Substance: ATENOLOL
  4. ATENOLOL. [Suspect]
     Active Substance: ATENOLOL
     Indication: BLOOD PRESSURE INCREASED
     Dosage: 50 MG/1 TABLET
     Route: 048
     Dates: start: 20160222, end: 20160306
  5. ATENOLOL. [Suspect]
     Active Substance: ATENOLOL
     Indication: HEART RATE IRREGULAR
     Dosage: 50 MG/1 TABLET
     Route: 048
     Dates: start: 20160222, end: 20160306
  6. FINACEA [Concomitant]
     Active Substance: AZELAIC ACID
  7. SYNTHROID [Concomitant]
     Active Substance: LEVOTHYROXINE SODIUM

REACTIONS (4)
  - Respiratory tract congestion [None]
  - Product substitution issue [None]
  - Sinus congestion [None]
  - Oropharyngeal pain [None]

NARRATIVE: CASE EVENT DATE: 20160224
